FAERS Safety Report 6397910-5 (Version None)
Quarter: 2009Q4

REPORT INFORMATION
  Report Type: 
  Country: None (occurrence: None)
  Receive Date: 20091013
  Receipt Date: 20091006
  Transmission Date: 20100525
  Serious: Yes (Other)
  Sender: FDA-Public Use
  Company Number: JP-ALLERGAN-0912457US

PATIENT
  Age: 35 Year
  Sex: Female

DRUGS (3)
  1. BOTOX [Suspect]
     Indication: FACIAL SPASM
     Dosage: 15 UNITS, SINGLE
     Route: 030
     Dates: start: 20090819, end: 20090819
  2. DIAZEPAM [Concomitant]
     Indication: ANXIETY
     Dosage: 4 MG, BID
     Route: 048
     Dates: start: 20090907
  3. RIVOTRIL [Concomitant]
     Indication: ANXIETY
     Dosage: 1 MG, BID
     Route: 048
     Dates: start: 20090701

REACTIONS (2)
  - CORNEAL EROSION [None]
  - LAGOPHTHALMOS [None]
